FAERS Safety Report 9016928 (Version 1)
Quarter: 2013Q1

REPORT INFORMATION
  Report Type: Spontaneous
  Country: US (occurrence: US)
  Receive Date: 20130117
  Receipt Date: 20130117
  Transmission Date: 20140127
  Serious: Yes (Other)
  Sender: FDA-Public Use
  Company Number: PHHY2013US003474

PATIENT
  Age: 57 Year
  Sex: Male

DRUGS (1)
  1. FTY 720 [Suspect]
     Indication: PROGRESSIVE MULTIPLE SCLEROSIS
     Dosage: 0.5 MG, QD
     Route: 048

REACTIONS (3)
  - Macular fibrosis [Unknown]
  - Cystoid macular oedema [Unknown]
  - Visual acuity reduced [Recovering/Resolving]
